FAERS Safety Report 12763561 (Version 4)
Quarter: 2016Q4

REPORT INFORMATION
  Report Type: Spontaneous
  Country: US (occurrence: US)
  Receive Date: 20160920
  Receipt Date: 20161113
  Transmission Date: 20170207
  Serious: Yes (Hospitalization, Other)
  Sender: FDA-Public Use
  Company Number: US-009507513-1609USA008222

PATIENT
  Sex: Female
  Weight: 81.63 kg

DRUGS (2)
  1. NUVARING [Suspect]
     Active Substance: ETHINYL ESTRADIOL\ETONOGESTREL
     Indication: CONTRACEPTION
     Dosage: 0.12MG-0.015 MG DAILY
     Route: 067
     Dates: start: 2007, end: 20140928
  2. SYNTHROID [Concomitant]
     Active Substance: LEVOTHYROXINE SODIUM
     Indication: THYROID DISORDER
     Dosage: 150 MG, QD
     Route: 048
     Dates: start: 2006

REACTIONS (11)
  - Deep vein thrombosis [Recovered/Resolved with Sequelae]
  - Hypokalaemia [Unknown]
  - Hypertension [Unknown]
  - Anxiety [Unknown]
  - Haemoptysis [Unknown]
  - Plantar fasciitis [Unknown]
  - Drug hypersensitivity [Unknown]
  - Hyperglycaemia [Unknown]
  - Constipation [Unknown]
  - Pulmonary embolism [Recovered/Resolved]
  - Hyponatraemia [Unknown]

NARRATIVE: CASE EVENT DATE: 20140925
